FAERS Safety Report 6076491-X (Version None)
Quarter: 2009Q1

REPORT INFORMATION
  Report Type: 
  Country: None (occurrence: None)
  Receive Date: 20090211
  Receipt Date: 20090211
  Transmission Date: 20090719
  Serious: Yes (Other)
  Sender: FDA-Public Use
  Company Number: None

PATIENT
  Age: 65 Year
  Sex: Female
  Weight: 49.8957 kg

DRUGS (1)
  1. ZOMETA [Suspect]
     Indication: OSTEOPOROSIS
     Dosage: ? TREATMENT FOR OSTEOPOROSIS TO BE YEARLY
     Dates: start: 20080731

REACTIONS (2)
  - ANOREXIA [None]
  - WEIGHT DECREASED [None]
